FAERS Safety Report 5133333-4 (Version None)
Quarter: 2006Q4

REPORT INFORMATION
  Report Type: 
  Country: None (occurrence: None)
  Receive Date: 20060831
  Receipt Date: 20060615
  Transmission Date: 20070319
  Serious: No
  Sender: FDA-Public Use
  Company Number: 2006-BP-06867BP

PATIENT
  Age: 59 Year
  Sex: Female

DRUGS (4)
  1. SPIRIVA [Suspect]
     Indication: CHRONIC OBSTRUCTIVE PULMONARY DISEASE
     Dosage: 18 MCG (18 MCG,1 IN 1 D),IH
     Dates: start: 20050601, end: 20050615
  2. PROTONIX [Concomitant]
  3. ALBUTEROL [Concomitant]
  4. XOPENEX [Concomitant]

REACTIONS (4)
  - CHOKING [None]
  - COUGH [None]
  - THROAT IRRITATION [None]
  - VISION BLURRED [None]
